FAERS Safety Report 6800469-9 (Version None)
Quarter: 2010Q2

REPORT INFORMATION
  Report Type: 
  Country: None (occurrence: None)
  Receive Date: 20100629
  Receipt Date: 20100618
  Transmission Date: 20101027
  Serious: No
  Sender: FDA-Public Use
  Company Number: US-BIOGENIDEC-2010BI021053

PATIENT
  Age: 62 Year
  Sex: Female

DRUGS (1)
  1. TYSABRI [Suspect]
     Indication: MULTIPLE SCLEROSIS
     Route: 042
     Dates: start: 20091118

REACTIONS (7)
  - BALANCE DISORDER [None]
  - CONTUSION [None]
  - FALL [None]
  - HEAD INJURY [None]
  - MIGRAINE [None]
  - POOR VENOUS ACCESS [None]
  - VISUAL IMPAIRMENT [None]
